FAERS Safety Report 16059139 (Version 1)
Quarter: 2019Q1

REPORT INFORMATION
  Report Type: Spontaneous
  Country: ES (occurrence: ES)
  Receive Date: 20190311
  Receipt Date: 20190311
  Transmission Date: 20190418
  Serious: Yes (Other)
  Sender: FDA-Public Use
  Company Number: ES-FRESENIUS KABI-FK201902574

PATIENT
  Age: 77 Year
  Sex: Male

DRUGS (1)
  1. HEPARIN (MANUFACTURER UNKNOWN) [Suspect]
     Active Substance: HEPARIN SODIUM
     Indication: ANTICOAGULANT THERAPY
     Dosage: UNKNOWN
     Route: 065

REACTIONS (4)
  - Heparin-induced thrombocytopenia [Recovering/Resolving]
  - Thrombosis [Recovering/Resolving]
  - Cardiogenic shock [Recovering/Resolving]
  - Acute coronary syndrome [Recovering/Resolving]
